FAERS Safety Report 6010228-5 (Version None)
Quarter: 2008Q4

REPORT INFORMATION
  Report Type: 
  Country: None (occurrence: None)
  Receive Date: 20081218
  Receipt Date: 20080115
  Transmission Date: 20090506
  Serious: Yes (Other)
  Sender: FDA-Public Use
  Company Number: A0703335A

PATIENT
  Sex: Female

DRUGS (10)
  1. FLONASE [Suspect]
     Dosage: 2SPR PER DAY
     Route: 045
     Dates: start: 19970101, end: 20071201
  2. PLAVIX [Concomitant]
  3. TOPROL-XL [Concomitant]
  4. FEMARA [Concomitant]
  5. ASPIRIN [Concomitant]
  6. VITAMINS [Concomitant]
  7. CRESTOR [Concomitant]
  8. CHOLESTEROL REDUCING AGENT [Concomitant]
  9. EYE DROPS [Concomitant]
  10. VERAMYST [Concomitant]
     Indication: DRUG USE FOR UNKNOWN INDICATION
     Dosage: 2SPR PER DAY
     Route: 045
     Dates: start: 20071222, end: 20080106

REACTIONS (4)
  - CATARACT [None]
  - DRUG INEFFECTIVE [None]
  - NASAL ULCER [None]
  - VISION BLURRED [None]
